FAERS Safety Report 9120008 (Version 5)
Quarter: 2013Q2

REPORT INFORMATION
  Report Type: Spontaneous
  Country: JP (occurrence: JP)
  Receive Date: 20130226
  Receipt Date: 20130529
  Transmission Date: 20140414
  Serious: Yes (Hospitalization, Other)
  Sender: FDA-Public Use
  Company Number: JP-VERTEX PHARMACEUTICALS INC.-2013-002401

PATIENT
  Age: 59 Year
  Sex: Female

DRUGS (10)
  1. TELAVIC [Suspect]
     Indication: CHRONIC HEPATITIS C
     Dosage: 1500 MG, QD
     Route: 048
     Dates: start: 20130123, end: 20130221
  2. TELAVIC [Suspect]
     Dosage: 1000 MG, QD
     Route: 048
     Dates: start: 20130222
  3. PEGINTRON [Suspect]
     Indication: CHRONIC HEPATITIS C
     Dosage: 1.5 ?G/KG, QW
     Route: 058
     Dates: start: 20130123, end: 20130123
  4. PEGINTRON [Suspect]
     Dosage: 0.95 ?G/KG, QW
     Route: 058
     Dates: start: 20130130
  5. REBETOL [Suspect]
     Indication: CHRONIC HEPATITIS C
     Dosage: 600 MG, QD
     Route: 048
     Dates: start: 20130123, end: 20130219
  6. REBETOL [Suspect]
     Dosage: 400 MG, QD
     Route: 048
     Dates: start: 20130220
  7. COLONEL [Concomitant]
     Dosage: 3.6 G, QD
     Route: 048
  8. LAC-B [Concomitant]
     Dosage: 3.0 G, QD
     Route: 048
  9. RIZE [Concomitant]
     Dosage: 5 MG, QD
     Route: 048
  10. LOXONIN [Concomitant]
     Dosage: 60 MG, QD
     Route: 048
     Dates: start: 20130123

REACTIONS (4)
  - Decreased appetite [Recovered/Resolved]
  - Malaise [Recovered/Resolved]
  - Platelet count decreased [Recovered/Resolved]
  - Toxic skin eruption [Recovered/Resolved]
